FAERS Safety Report 7875078-3 (Version None)
Quarter: 2011Q4

REPORT INFORMATION
  Report Type: 
  Country: None (occurrence: None)
  Receive Date: 20111031
  Receipt Date: 20111018
  Transmission Date: 20120403
  Serious: Yes (Death)
  Sender: FDA-Public Use
  Company Number: US-BIOGENIDEC-2011BI033697

PATIENT
  Sex: Female

DRUGS (1)
  1. TYSABRI [Suspect]
     Indication: MATERNAL EXPOSURE DURING PREGNANCY
     Route: 042
     Dates: start: 20070309, end: 20100910

REACTIONS (1)
  - PREMATURE SEPARATION OF PLACENTA [None]
